FAERS Safety Report 11079475 (Version 1)
Quarter: 2015Q2

REPORT INFORMATION
  Report Type: Spontaneous
  Country: US (occurrence: US)
  Receive Date: 20150430
  Receipt Date: 20150430
  Transmission Date: 20150821
  Serious: No
  Sender: FDA-Public Use
  Company Number: US-GLAXOSMITHKLINE-US2015GSK058235

PATIENT
  Sex: Female
  Weight: 63.7 kg

DRUGS (12)
  1. CELEXA [Concomitant]
     Active Substance: CITALOPRAM HYDROBROMIDE
  2. CLONIDINE. [Concomitant]
     Active Substance: CLONIDINE
  3. OMEPRAZOLE. [Concomitant]
     Active Substance: OMEPRAZOLE
  4. LYRICA [Concomitant]
     Active Substance: PREGABALIN
  5. CALCIUM PLUS VITAMIN D [Concomitant]
     Active Substance: CALCIUM\VITAMIN D
  6. MEKINIST [Suspect]
     Active Substance: TRAMETINIB DIMETHYL SULFOXIDE
     Indication: MALIGNANT MELANOMA
     Dosage: 2 MG, QD
     Route: 048
  7. TYLENOL TABLET [Concomitant]
  8. FENTANYL. [Concomitant]
     Active Substance: FENTANYL
  9. HYDROMORPHONE [Concomitant]
     Active Substance: HYDROMORPHONE
  10. PROPANOLOL [Concomitant]
     Active Substance: PROPRANOLOL HYDROCHLORIDE
  11. DICLOFENAC SODIUM. [Suspect]
     Active Substance: DICLOFENAC SODIUM
     Indication: PRODUCT USED FOR UNKNOWN INDICATION
  12. POTASSIUM [Concomitant]
     Active Substance: POTASSIUM

REACTIONS (3)
  - Lymphadenopathy [Unknown]
  - Pain in extremity [Unknown]
  - Drug hypersensitivity [Unknown]
